FAERS Safety Report 18513705 (Version 1)
Quarter: 2020Q4

REPORT INFORMATION
  Report Type: Spontaneous
  Country: US (occurrence: MX)
  Receive Date: 20201117
  Receipt Date: 20201117
  Transmission Date: 20210114
  Serious: Yes (Other)
  Sender: FDA-Public Use
  Company Number: MX-BIOMARINAP-MX-2020-133368

PATIENT
  Age: 10 Year

DRUGS (1)
  1. ALDURAZYME [Suspect]
     Active Substance: LARONIDASE
     Indication: MUCOPOLYSACCHARIDOSIS I
     Dosage: 500 UNK
     Route: 041
     Dates: start: 2012

REACTIONS (5)
  - Ear disorder [Unknown]
  - Adenoiditis [Unknown]
  - Ear disorder [Unknown]
  - Amygdalotomy [Unknown]
  - Sleep apnoea syndrome [Unknown]

NARRATIVE: CASE EVENT DATE: 2015
